FAERS Safety Report 12449901 (Version 4)
Quarter: 2017Q4

REPORT INFORMATION
  Report Type: Spontaneous
  Country: US (occurrence: US)
  Receive Date: 20160609
  Receipt Date: 20171123
  Transmission Date: 20180320
  Serious: Yes (Other)
  Sender: FDA-Public Use
  Company Number: US-JNJFOC-20160517730

PATIENT
  Age: 17 Year
  Sex: Male

DRUGS (73)
  1. RISPERDAL [Suspect]
     Active Substance: RISPERIDONE
     Indication: CONDUCT DISORDER
     Route: 048
     Dates: start: 20151216
  2. RISPERDAL [Suspect]
     Active Substance: RISPERIDONE
     Indication: AFFECTIVE DISORDER
     Dosage: 1 MG, 2 MG AND 3 MG
     Route: 048
     Dates: start: 20071217, end: 20090121
  3. RISPERDAL [Suspect]
     Active Substance: RISPERIDONE
     Indication: AFFECTIVE DISORDER
     Route: 048
     Dates: start: 201401, end: 201512
  4. RISPERDAL [Suspect]
     Active Substance: RISPERIDONE
     Indication: ADJUSTMENT DISORDER
     Route: 048
     Dates: start: 201401, end: 201512
  5. RISPERDAL [Suspect]
     Active Substance: RISPERIDONE
     Indication: OPPOSITIONAL DEFIANT DISORDER
     Route: 048
     Dates: start: 20100729, end: 20150706
  6. INVEGA [Suspect]
     Active Substance: PALIPERIDONE
     Indication: CONDUCT DISORDER
     Route: 048
     Dates: start: 20120522
  7. INVEGA [Suspect]
     Active Substance: PALIPERIDONE
     Indication: ADJUSTMENT DISORDER
     Route: 048
     Dates: start: 20120613
  8. INVEGA [Suspect]
     Active Substance: PALIPERIDONE
     Indication: OPPOSITIONAL DEFIANT DISORDER
     Route: 048
     Dates: start: 20111101
  9. RISPERDAL [Suspect]
     Active Substance: RISPERIDONE
     Indication: AFFECTIVE DISORDER
     Route: 048
     Dates: start: 20111011, end: 20120715
  10. RISPERDAL [Suspect]
     Active Substance: RISPERIDONE
     Indication: OPPOSITIONAL DEFIANT DISORDER
     Route: 048
     Dates: start: 20151216
  11. RISPERDAL [Suspect]
     Active Substance: RISPERIDONE
     Indication: OPPOSITIONAL DEFIANT DISORDER
     Route: 048
     Dates: start: 201401, end: 201512
  12. RISPERDAL [Suspect]
     Active Substance: RISPERIDONE
     Indication: ATTENTION DEFICIT/HYPERACTIVITY DISORDER
     Route: 048
     Dates: start: 20100729, end: 20150706
  13. RISPERIDONE. [Suspect]
     Active Substance: RISPERIDONE
     Indication: CONDUCT DISORDER
     Dosage: VARING DOSES OF 1 MG, 2MG, 3MG AND 4 MG
     Route: 048
  14. INVEGA [Suspect]
     Active Substance: PALIPERIDONE
     Indication: CONDUCT DISORDER
     Route: 048
     Dates: start: 20111011
  15. INVEGA [Suspect]
     Active Substance: PALIPERIDONE
     Indication: CONDUCT DISORDER
     Route: 048
     Dates: start: 20120613
  16. INVEGA [Suspect]
     Active Substance: PALIPERIDONE
     Indication: AFFECTIVE DISORDER
     Route: 048
     Dates: start: 20120308, end: 20120403
  17. INVEGA [Suspect]
     Active Substance: PALIPERIDONE
     Indication: AFFECTIVE DISORDER
     Route: 048
     Dates: start: 20120118, end: 20120209
  18. INVEGA [Suspect]
     Active Substance: PALIPERIDONE
     Indication: AFFECTIVE DISORDER
     Route: 048
     Dates: start: 20111011
  19. INVEGA [Suspect]
     Active Substance: PALIPERIDONE
     Indication: ADJUSTMENT DISORDER
     Route: 048
     Dates: start: 20111011
  20. RISPERDAL [Suspect]
     Active Substance: RISPERIDONE
     Indication: CONDUCT DISORDER
     Route: 048
     Dates: start: 20111011, end: 20120715
  21. RISPERDAL [Suspect]
     Active Substance: RISPERIDONE
     Indication: AFFECTIVE DISORDER
     Route: 048
     Dates: start: 20151216
  22. RISPERDAL [Suspect]
     Active Substance: RISPERIDONE
     Indication: ADJUSTMENT DISORDER
     Route: 048
     Dates: start: 20111011, end: 20120715
  23. RISPERDAL [Suspect]
     Active Substance: RISPERIDONE
     Indication: ATTENTION DEFICIT/HYPERACTIVITY DISORDER
     Dosage: 1 MG, 2 MG AND 3 MG
     Route: 048
     Dates: start: 20071217, end: 20090121
  24. INVEGA [Suspect]
     Active Substance: PALIPERIDONE
     Indication: CONDUCT DISORDER
     Route: 048
     Dates: start: 20120501
  25. INVEGA [Suspect]
     Active Substance: PALIPERIDONE
     Indication: AFFECTIVE DISORDER
     Route: 048
     Dates: start: 20120522
  26. INVEGA [Suspect]
     Active Substance: PALIPERIDONE
     Indication: ADJUSTMENT DISORDER
     Route: 048
     Dates: start: 20120705
  27. INVEGA [Suspect]
     Active Substance: PALIPERIDONE
     Indication: ADJUSTMENT DISORDER
     Route: 048
     Dates: start: 20120522
  28. INVEGA [Suspect]
     Active Substance: PALIPERIDONE
     Indication: OPPOSITIONAL DEFIANT DISORDER
     Route: 048
     Dates: start: 20111125
  29. RISPERDAL [Suspect]
     Active Substance: RISPERIDONE
     Indication: CONDUCT DISORDER
     Dosage: 1 MG, 2 MG AND 3 MG
     Route: 048
     Dates: start: 20071217, end: 20090121
  30. RISPERDAL [Suspect]
     Active Substance: RISPERIDONE
     Indication: ATTENTION DEFICIT/HYPERACTIVITY DISORDER
     Route: 048
     Dates: start: 20111011, end: 20120715
  31. INVEGA [Suspect]
     Active Substance: PALIPERIDONE
     Indication: CONDUCT DISORDER
     Route: 048
     Dates: start: 20120705
  32. INVEGA [Suspect]
     Active Substance: PALIPERIDONE
     Indication: CONDUCT DISORDER
     Route: 048
     Dates: start: 20120118, end: 20120209
  33. INVEGA [Suspect]
     Active Substance: PALIPERIDONE
     Indication: AFFECTIVE DISORDER
     Route: 048
     Dates: start: 20120613
  34. INVEGA [Suspect]
     Active Substance: PALIPERIDONE
     Indication: ADJUSTMENT DISORDER
     Route: 048
     Dates: start: 20111101
  35. INVEGA [Suspect]
     Active Substance: PALIPERIDONE
     Indication: OPPOSITIONAL DEFIANT DISORDER
     Route: 048
     Dates: start: 20120522
  36. RISPERIDONE. [Suspect]
     Active Substance: RISPERIDONE
     Indication: OPPOSITIONAL DEFIANT DISORDER
     Dosage: VARYING DOSES OF 1 MG, 2 MG AND 3 MG
     Route: 048
  37. RISPERDAL [Suspect]
     Active Substance: RISPERIDONE
     Indication: OPPOSITIONAL DEFIANT DISORDER
     Route: 048
     Dates: start: 20111011, end: 20120715
  38. RISPERIDONE. [Suspect]
     Active Substance: RISPERIDONE
     Indication: OPPOSITIONAL DEFIANT DISORDER
     Dosage: VARING DOSES OF 1 MG, 2MG, 3MG AND 4 MG
     Route: 048
  39. INVEGA [Suspect]
     Active Substance: PALIPERIDONE
     Indication: AFFECTIVE DISORDER
     Route: 048
     Dates: start: 20111101
  40. INVEGA [Suspect]
     Active Substance: PALIPERIDONE
     Indication: AFFECTIVE DISORDER
     Route: 048
     Dates: start: 20120501
  41. INVEGA [Suspect]
     Active Substance: PALIPERIDONE
     Indication: ADJUSTMENT DISORDER
     Route: 048
     Dates: start: 20111125
  42. INVEGA [Suspect]
     Active Substance: PALIPERIDONE
     Indication: OPPOSITIONAL DEFIANT DISORDER
     Route: 048
     Dates: start: 20120118, end: 20120209
  43. INVEGA [Suspect]
     Active Substance: PALIPERIDONE
     Indication: OPPOSITIONAL DEFIANT DISORDER
     Route: 048
     Dates: start: 20111011
  44. RISPERDAL [Suspect]
     Active Substance: RISPERIDONE
     Indication: CONDUCT DISORDER
     Route: 048
     Dates: start: 20100729, end: 20150706
  45. RISPERDAL [Suspect]
     Active Substance: RISPERIDONE
     Indication: AFFECTIVE DISORDER
     Route: 048
     Dates: start: 20100729, end: 20150706
  46. RISPERIDONE. [Suspect]
     Active Substance: RISPERIDONE
     Indication: AFFECTIVE DISORDER
     Dosage: VARING DOSES OF 1 MG, 2MG, 3MG AND 4 MG
     Route: 048
  47. INVEGA [Suspect]
     Active Substance: PALIPERIDONE
     Indication: CONDUCT DISORDER
     Route: 048
     Dates: start: 20111101
  48. INVEGA [Suspect]
     Active Substance: PALIPERIDONE
     Indication: CONDUCT DISORDER
     Route: 048
     Dates: start: 20111223
  49. INVEGA [Suspect]
     Active Substance: PALIPERIDONE
     Indication: AFFECTIVE DISORDER
     Route: 048
     Dates: start: 20120705
  50. INVEGA [Suspect]
     Active Substance: PALIPERIDONE
     Indication: ADJUSTMENT DISORDER
     Route: 048
     Dates: start: 20120308, end: 20120403
  51. INVEGA [Suspect]
     Active Substance: PALIPERIDONE
     Indication: OPPOSITIONAL DEFIANT DISORDER
     Route: 048
     Dates: start: 20120705
  52. RISPERDAL [Suspect]
     Active Substance: RISPERIDONE
     Indication: CONDUCT DISORDER
     Route: 048
     Dates: start: 201401, end: 201512
  53. RISPERDAL [Suspect]
     Active Substance: RISPERIDONE
     Indication: ADJUSTMENT DISORDER
     Route: 048
     Dates: start: 20100729, end: 20150706
  54. RISPERDAL [Suspect]
     Active Substance: RISPERIDONE
     Indication: ADJUSTMENT DISORDER
     Dosage: 1 MG, 2 MG AND 3 MG
     Route: 048
     Dates: start: 20071217, end: 20090121
  55. INVEGA [Suspect]
     Active Substance: PALIPERIDONE
     Indication: CONDUCT DISORDER
     Route: 048
     Dates: start: 20120308, end: 20120403
  56. INVEGA [Suspect]
     Active Substance: PALIPERIDONE
     Indication: CONDUCT DISORDER
     Route: 048
     Dates: start: 20111125
  57. INVEGA [Suspect]
     Active Substance: PALIPERIDONE
     Indication: ADJUSTMENT DISORDER
     Route: 048
     Dates: start: 20111223
  58. INVEGA [Suspect]
     Active Substance: PALIPERIDONE
     Indication: ADJUSTMENT DISORDER
     Route: 048
     Dates: start: 20120118, end: 20120209
  59. INVEGA [Suspect]
     Active Substance: PALIPERIDONE
     Indication: OPPOSITIONAL DEFIANT DISORDER
     Route: 048
     Dates: start: 20120613
  60. INVEGA [Suspect]
     Active Substance: PALIPERIDONE
     Indication: OPPOSITIONAL DEFIANT DISORDER
     Route: 048
     Dates: start: 20120501
  61. INVEGA [Suspect]
     Active Substance: PALIPERIDONE
     Indication: OPPOSITIONAL DEFIANT DISORDER
     Route: 048
     Dates: start: 20111223
  62. RISPERDAL [Suspect]
     Active Substance: RISPERIDONE
     Indication: ADJUSTMENT DISORDER
     Route: 048
     Dates: start: 20151216
  63. RISPERDAL [Suspect]
     Active Substance: RISPERIDONE
     Indication: OPPOSITIONAL DEFIANT DISORDER
     Dosage: 1 MG, 2 MG AND 3 MG
     Route: 048
     Dates: start: 20071217, end: 20090121
  64. RISPERDAL [Suspect]
     Active Substance: RISPERIDONE
     Indication: ATTENTION DEFICIT/HYPERACTIVITY DISORDER
     Route: 048
     Dates: start: 20151216
  65. RISPERDAL [Suspect]
     Active Substance: RISPERIDONE
     Indication: ATTENTION DEFICIT/HYPERACTIVITY DISORDER
     Route: 048
     Dates: start: 201401, end: 201512
  66. RISPERIDONE. [Suspect]
     Active Substance: RISPERIDONE
     Indication: ADJUSTMENT DISORDER
     Dosage: VARING DOSES OF 1 MG, 2MG, 3MG AND 4 MG
     Route: 048
  67. INVEGA [Suspect]
     Active Substance: PALIPERIDONE
     Indication: AFFECTIVE DISORDER
     Route: 048
     Dates: start: 20111125
  68. INVEGA [Suspect]
     Active Substance: PALIPERIDONE
     Indication: AFFECTIVE DISORDER
     Route: 048
     Dates: start: 20111223
  69. INVEGA [Suspect]
     Active Substance: PALIPERIDONE
     Indication: ADJUSTMENT DISORDER
     Route: 048
     Dates: start: 20120501
  70. INVEGA [Suspect]
     Active Substance: PALIPERIDONE
     Indication: OPPOSITIONAL DEFIANT DISORDER
     Route: 048
     Dates: start: 20120308, end: 20120403
  71. RISPERIDONE. [Suspect]
     Active Substance: RISPERIDONE
     Indication: CONDUCT DISORDER
     Dosage: VARYING DOSES OF 1 MG, 2 MG AND 3 MG
     Route: 048
  72. RISPERIDONE. [Suspect]
     Active Substance: RISPERIDONE
     Indication: AFFECTIVE DISORDER
     Dosage: VARYING DOSES OF 1 MG, 2 MG AND 3 MG
     Route: 048
  73. RISPERIDONE. [Suspect]
     Active Substance: RISPERIDONE
     Indication: ADJUSTMENT DISORDER
     Dosage: VARYING DOSES OF 1 MG, 2 MG AND 3 MG
     Route: 048

REACTIONS (4)
  - Gynaecomastia [Unknown]
  - Product use in unapproved indication [Unknown]
  - Off label use [Unknown]
  - Emotional disorder [Unknown]

NARRATIVE: CASE EVENT DATE: 201401
